FAERS Safety Report 8510687-X (Version None)
Quarter: 2012Q3

REPORT INFORMATION
  Report Type: 
  Country: None (occurrence: None)
  Receive Date: 20120709
  Receipt Date: 20120709
  Transmission Date: 20120928
  Serious: No
  Sender: FDA-Public Use
  Company Number: None

PATIENT

DRUGS (1)
  1. DOXYCYCLINE HYCLATE [Suspect]
     Dosage: ORAL, 50 MG

REACTIONS (2)
  - WRONG DRUG ADMINISTERED [None]
  - DRUG DISPENSING ERROR [None]
